FAERS Safety Report 7387336-X (Version None)
Quarter: 2011Q1

REPORT INFORMATION
  Report Type: 
  Country: None (occurrence: None)
  Receive Date: 20110331
  Receipt Date: 20110324
  Transmission Date: 20110831
  Serious: Yes (Death, Hospitalization)
  Sender: FDA-Public Use
  Company Number: US-ELI_LILLY_AND_COMPANY-US201102000852

PATIENT
  Sex: Male
  Weight: 67.12 kg

DRUGS (14)
  1. ABRAXANE [Concomitant]
  2. DEXAMETHASONE [Concomitant]
  3. COUMADIN [Concomitant]
  4. REGLAN [Concomitant]
  5. ARANESP [Concomitant]
  6. GEMZAR [Suspect]
     Indication: PANCREATIC CARCINOMA
     Dosage: 1780 MG, UNK
     Route: 042
     Dates: start: 20100720, end: 20101206
  7. ALOXI [Concomitant]
  8. LASIX [Concomitant]
  9. ATIVAN [Concomitant]
  10. LORTAB [Concomitant]
  11. METHADONE HYDROCHLORIDE [Concomitant]
  12. ZOFRAN [Concomitant]
  13. MEGACE [Concomitant]
  14. CELEXA [Concomitant]

REACTIONS (1)
  - PANCREATIC CARCINOMA METASTATIC [None]
